FAERS Safety Report 7515482-6 (Version None)
Quarter: 2011Q2

REPORT INFORMATION
  Report Type: 
  Country: None (occurrence: None)
  Receive Date: 20110601
  Receipt Date: 20100712
  Transmission Date: 20111010
  Serious: Yes (Other)
  Sender: FDA-Public Use
  Company Number: US-PFIZER INC-2010023239

PATIENT
  Sex: Female

DRUGS (12)
  1. CHANTIX [Suspect]
     Indication: SMOKING CESSATION THERAPY
     Dosage: UNK
     Route: 048
     Dates: start: 20070601, end: 20080301
  2. LIPITOR [Concomitant]
     Indication: BLOOD CHOLESTEROL INCREASED
     Dosage: UNK
  3. PAXIL [Concomitant]
     Indication: DEPRESSION
     Dosage: UNK
     Dates: start: 20000101
  4. NEXIUM [Concomitant]
     Indication: DYSPEPSIA
     Dosage: UNK
     Dates: start: 19940101
  5. HYDROCODONE [Concomitant]
     Indication: PAIN MANAGEMENT
     Dosage: UNK
     Dates: start: 19930101
  6. AMBIEN [Concomitant]
     Indication: INSOMNIA
     Dosage: UNK
     Dates: start: 19940101
  7. PLETAL [Concomitant]
     Indication: MUSCLE SPASMS
     Dosage: UNK
     Dates: start: 20060101
  8. ASPIRIN [Concomitant]
     Indication: CARDIAC DISORDER
     Dosage: UNK
  9. ENALAPRIL [Concomitant]
     Indication: HYPERTENSION
     Dosage: UNK
  10. PAXIL [Concomitant]
     Indication: ANXIETY
  11. XANAX [Concomitant]
     Indication: ANXIETY
  12. XANAX [Concomitant]
     Indication: DEPRESSION
     Dosage: UNK
     Dates: start: 20000101

REACTIONS (4)
  - ANXIETY [None]
  - SUICIDAL IDEATION [None]
  - ABNORMAL DREAMS [None]
  - DEPRESSION [None]
